FAERS Safety Report 9968618 (Version 1)
Quarter: 2014Q1

REPORT INFORMATION
  Report Type: Report from Study
  Country: US (occurrence: US)
  Receive Date: 20140306
  Receipt Date: 20140306
  Transmission Date: 20141002
  Serious: No
  Sender: FDA-Public Use
  Company Number: US-ABBVIE-13P-163-1143234-00

PATIENT
  Age: 51 Year
  Sex: Female
  Weight: 80.36 kg

DRUGS (26)
  1. HUMIRA [Suspect]
     Indication: RHEUMATOID ARTHRITIS
     Dates: start: 20130821
  2. METHOTREXATE [Concomitant]
     Indication: RHEUMATOID ARTHRITIS
  3. METHADONE [Concomitant]
     Indication: PAIN
  4. METHADONE [Concomitant]
     Indication: BACK PAIN
  5. NORCO [Concomitant]
     Indication: PAIN
     Dosage: 10/325 MG
  6. NORCO [Concomitant]
     Indication: PAIN
  7. METFORMIN [Concomitant]
     Indication: PRODUCT USED FOR UNKNOWN INDICATION
  8. JANUVIA [Concomitant]
     Indication: DIABETES MELLITUS
  9. JANUVIA [Concomitant]
     Indication: THROMBOSIS
  10. JANUVIA [Concomitant]
  11. AMITIZA [Concomitant]
     Indication: CARCINOID SYNDROME
  12. AMITIZA [Concomitant]
     Indication: COELIAC DISEASE
  13. AMITIZA [Concomitant]
     Indication: DIVERTICULITIS
  14. NEXIUM [Concomitant]
     Indication: GASTROOESOPHAGEAL REFLUX DISEASE
  15. AMVALIDE [Concomitant]
     Indication: HYPERTENSION
     Dosage: 150/12.5 MG TAKES .5 PILL DAILY
  16. LASIX [Concomitant]
     Indication: FLUID RETENTION
  17. KLOR-CON [Concomitant]
     Indication: BLOOD POTASSIUM
  18. METANX [Concomitant]
     Indication: VITAMIN SUPPLEMENTATION
  19. LOVAZA [Concomitant]
     Indication: PRODUCT USED FOR UNKNOWN INDICATION
  20. OMEGA-3 [Concomitant]
     Indication: PRODUCT USED FOR UNKNOWN INDICATION
  21. VITAMIN D3 [Concomitant]
     Indication: PRODUCT USED FOR UNKNOWN INDICATION
  22. SYNTHROID [Concomitant]
     Indication: THYROIDECTOMY
  23. CYMBALTA [Concomitant]
     Indication: NEUROPATHY PERIPHERAL
     Dosage: AT BEDTIME
  24. CYMBALTA [Concomitant]
     Indication: BLOOD TRIGLYCERIDES
     Dosage: FERQUENCY UNKNOWN
  25. CRESTOR [Concomitant]
     Indication: BLOOD CHOLESTEROL INCREASED
     Dosage: AT BEDTIME
  26. VALIUM [Concomitant]
     Indication: HEADACHE

REACTIONS (1)
  - Injection site pain [Not Recovered/Not Resolved]
